FAERS Safety Report 15580698 (Version 1)
Quarter: 2018Q4

REPORT INFORMATION
  Report Type: Spontaneous
  Country: US (occurrence: US)
  Receive Date: 20181102
  Receipt Date: 20181102
  Transmission Date: 20190205
  Serious: Yes (Hospitalization)
  Sender: FDA-Public Use
  Company Number: None

PATIENT
  Age: 39 Year
  Sex: Female
  Weight: 84.6 kg

DRUGS (2)
  1. PRENANTAL VITAMINS [Concomitant]
  2. MISOPROSTOL. [Suspect]
     Active Substance: MISOPROSTOL
     Indication: LABOUR INDUCTION
     Dosage: ?          QUANTITY:.5 TABLET(S);?
     Route: 048
     Dates: start: 20181006, end: 20181007

REACTIONS (6)
  - Retained placenta or membranes [None]
  - Peripartum haemorrhage [None]
  - Haemorrhage in pregnancy [None]
  - Suppressed lactation [None]
  - Off label use [None]
  - Maternal exposure during pregnancy [None]

NARRATIVE: CASE EVENT DATE: 20181007
